FAERS Safety Report 8919246 (Version 2)
Quarter: 2012Q4

REPORT INFORMATION
  Report Type: 
  Country: US (occurrence: US)
  Receive Date: 20121121
  Receipt Date: 20121217
  Transmission Date: 20130627
  Serious: No
  Sender: FDA-Public Use
  Company Number: US-PFIZER INC-2012291231

PATIENT
  Age: 68 Year
  Sex: Female
  Weight: 72.56 kg

DRUGS (3)
  1. LYRICA [Suspect]
     Indication: FIBROMYALGIA
     Dosage: 200 mg, 2x/day
     Dates: start: 201211, end: 201211
  2. LYRICA [Suspect]
     Dosage: UNK
  3. CYMBALTA [Concomitant]
     Dosage: 60 mg, daily

REACTIONS (4)
  - Drug prescribing error [Unknown]
  - Feeling jittery [Unknown]
  - Feeling abnormal [Unknown]
  - Drug intolerance [Unknown]
